FAERS Safety Report 4842407-4 (Version None)
Quarter: 2005Q4

REPORT INFORMATION
  Report Type: 
  Country: None (occurrence: None)
  Receive Date: 20051201
  Receipt Date: 20051118
  Transmission Date: 20060501
  Serious: Yes (Death, Life-Threatening, Hospitalization)
  Sender: FDA-Public Use
  Company Number: JP-BRISTOL-MYERS SQUIBB COMPANY-13196894

PATIENT
  Age: 63 Year
  Sex: Female

DRUGS (4)
  1. MEVALOTIN [Suspect]
     Indication: HYPERLIPIDAEMIA
     Route: 048
     Dates: start: 20051110, end: 20051113
  2. NILDILART [Concomitant]
     Indication: HYPERTENSION
     Dates: start: 20030612, end: 20051113
  3. GLYBURIDE [Concomitant]
     Indication: DIABETES MELLITUS
     Dates: start: 20040108, end: 20051113
  4. BASEN [Concomitant]
     Indication: DIABETES MELLITUS
     Dates: start: 20040415, end: 20051113

REACTIONS (3)
  - CARDIAC FAILURE [None]
  - CEREBRAL INFARCTION [None]
  - DISSEMINATED INTRAVASCULAR COAGULATION [None]
